FAERS Safety Report 7930325-4 (Version None)
Quarter: 2011Q4

REPORT INFORMATION
  Report Type: 
  Country: None (occurrence: None)
  Receive Date: 20111117
  Receipt Date: 20111117
  Transmission Date: 20120403
  Serious: Yes (Death, Life-Threatening, Hospitalization, Other)
  Sender: FDA-Public Use
  Company Number: None

PATIENT

DRUGS (2)
  1. ZETIA [Suspect]
     Indication: CRIME
     Dosage: 10 MG ONE PER DAY
     Dates: start: 20100501, end: 20110301
  2. ZETIA [Suspect]
     Indication: ELDER ABUSE
     Dosage: 10 MG ONE PER DAY
     Dates: start: 20100501, end: 20110301

REACTIONS (11)
  - MUSCLE INJURY [None]
  - BLOOD CREATINE PHOSPHOKINASE INCREASED [None]
  - INFECTION [None]
  - SEPTIC SHOCK [None]
  - MALNUTRITION [None]
  - RESPIRATORY FAILURE [None]
  - MUSCLE NECROSIS [None]
  - RHABDOMYOLYSIS [None]
  - LIVER INJURY [None]
  - RENAL DISORDER [None]
  - DIABETES MELLITUS [None]
